FAERS Safety Report 9605878 (Version 2)
Quarter: 2013Q4

REPORT INFORMATION
  Report Type: Spontaneous
  Country: GB (occurrence: GB)
  Receive Date: 20131008
  Receipt Date: 20131008
  Transmission Date: 20140711
  Serious: Yes (Other)
  Sender: FDA-Public Use
  Company Number: GB-WATSON-2012-23577

PATIENT
  Age: 58 Year
  Sex: Male

DRUGS (3)
  1. ANTABUSE [Suspect]
     Indication: ABSTAINS FROM ALCOHOL
     Dosage: 200 MG, UNKNOWN
     Route: 048
  2. CITALOPRAM [Concomitant]
     Indication: DEPRESSION
     Dosage: 30 MG, UNKNOWN
     Route: 048
  3. ALLOPURINOL [Concomitant]
     Indication: GOUT
     Dosage: 200 MG, UNKNOWN
     Route: 048

REACTIONS (8)
  - Liver function test abnormal [Recovered/Resolved]
  - Abdominal pain upper [Recovered/Resolved]
  - Paraesthesia [Recovered/Resolved]
  - Fatigue [Recovered/Resolved]
  - Chromaturia [Recovered/Resolved]
  - Faeces discoloured [Recovered/Resolved]
  - Eye colour change [Recovered/Resolved]
  - Abnormal faeces [Recovered/Resolved]
